FAERS Safety Report 25940817 (Version 1)
Quarter: 2025Q4

REPORT INFORMATION
  Report Type: Spontaneous
  Country: US (occurrence: None)
  Receive Date: 20251019
  Receipt Date: 20251019
  Transmission Date: 20260118
  Serious: Yes (Hospitalization)
  Sender: FDA-CTU
  Company Number: None

PATIENT
  Sex: Male

DRUGS (1)
  1. ENTECAVIR [Suspect]
     Active Substance: ENTECAVIR
     Indication: Chronic hepatitis B
     Dosage: FREQUENCY : DAILY;?
     Route: 048
     Dates: start: 20220826

REACTIONS (7)
  - Cerebral haemorrhage [None]
  - Spinal cord haemorrhage [None]
  - Myocardial infarction [None]
  - Hypertension [None]
  - Urinary tract disorder [None]
  - Gait disturbance [None]
  - Muscular weakness [None]
